FAERS Safety Report 8373347-4 (Version None)
Quarter: 2012Q2

REPORT INFORMATION
  Report Type: 
  Country: None (occurrence: None)
  Receive Date: 20120521
  Receipt Date: 20120516
  Transmission Date: 20120825
  Serious: Yes (Death)
  Sender: FDA-Public Use
  Company Number: JP-ASTRAZENECA-2012SE10761

PATIENT
  Age: 16738 Day
  Sex: Male

DRUGS (13)
  1. AZD6140 [Suspect]
     Indication: ACUTE CORONARY SYNDROME
     Route: 048
     Dates: start: 20110816
  2. ASPIRIN [Suspect]
     Indication: ACUTE CORONARY SYNDROME
     Route: 048
     Dates: start: 20110817
  3. CARVEDILOL [Suspect]
     Indication: HYPERTENSION
     Route: 048
     Dates: start: 20110831
  4. MICARDIS [Suspect]
     Indication: HYPERTENSION
     Route: 048
     Dates: start: 20110818
  5. LISINOPRIL [Suspect]
     Indication: HYPERTENSION
     Route: 048
     Dates: start: 20110829
  6. RHYTHMY [Suspect]
     Indication: INSOMNIA
     Route: 048
     Dates: start: 20110821
  7. PLACEBO [Suspect]
     Indication: ACUTE CORONARY SYNDROME
     Route: 048
     Dates: start: 20110816
  8. SIGMART [Suspect]
     Indication: CARDIOVASCULAR EVENT PROPHYLAXIS
     Route: 048
     Dates: start: 20110816
  9. LIPITOR [Suspect]
     Indication: HYPERLIPIDAEMIA
     Route: 048
     Dates: start: 20110816
  10. DEXALTIN [Concomitant]
     Indication: STOMATITIS
     Route: 002
     Dates: start: 20110915
  11. ZANTAC [Suspect]
     Indication: GASTRITIS PROPHYLAXIS
     Route: 048
     Dates: start: 20110816
  12. NITROGLYCERIN [Concomitant]
     Indication: ACUTE CORONARY SYNDROME
     Route: 060
     Dates: start: 20110816
  13. NICERGOLINE [Suspect]
     Indication: CEREBRAL CIRCULATORY FAILURE
     Route: 048
     Dates: start: 20110908

REACTIONS (1)
  - CEREBRAL HAEMORRHAGE [None]
